FAERS Safety Report 16192769 (Version 2)
Quarter: 2019Q2

REPORT INFORMATION
  Report Type: Report from Study
  Country: None (occurrence: CA)
  Receive Date: 20190412
  Receipt Date: 20190516
  Transmission Date: 20190711
  Serious: Yes (Hospitalization, Other)
  Sender: FDA-Public Use
  Company Number: CA-ABBVIE-19K-028-2742419-00

PATIENT
  Sex: Male

DRUGS (2)
  1. HUMIRA [Suspect]
     Active Substance: ADALIMUMAB
     Route: 058
     Dates: start: 20190103, end: 20190130
  2. HUMIRA [Suspect]
     Active Substance: ADALIMUMAB
     Indication: CROHN^S DISEASE
     Route: 058
     Dates: start: 20180214, end: 2018

REACTIONS (20)
  - Hyperkalaemia [Unknown]
  - Small intestinal obstruction [Not Recovered/Not Resolved]
  - Abdominal hernia [Unknown]
  - Abscess [Unknown]
  - Wound complication [Unknown]
  - Pyrexia [Unknown]
  - Incarcerated hernia [Recovered/Resolved with Sequelae]
  - Acute kidney injury [Unknown]
  - Gastrointestinal injury [Unknown]
  - Wound dehiscence [Unknown]
  - Major depression [Unknown]
  - Gastrointestinal stoma complication [Recovering/Resolving]
  - Malaise [Unknown]
  - Postoperative wound infection [Unknown]
  - Abdominal adhesions [Unknown]
  - Enteritis [Unknown]
  - Wound [Not Recovered/Not Resolved]
  - Post procedural fistula [Unknown]
  - Platelet count increased [Unknown]
  - Nausea [Unknown]

NARRATIVE: CASE EVENT DATE: 2018
